FAERS Safety Report 14810673 (Version 1)
Quarter: 2018Q2

REPORT INFORMATION
  Report Type: Spontaneous
  Country: DE (occurrence: DE)
  Receive Date: 20180425
  Receipt Date: 20180425
  Transmission Date: 20180711
  Serious: Yes (Hospitalization)
  Sender: FDA-Public Use
  Company Number: DE-ANIPHARMA-2018-DE-000058

PATIENT
  Age: 76 Year
  Sex: Female

DRUGS (7)
  1. CANDESARTAN CILEXETIL. [Suspect]
     Active Substance: CANDESARTAN CILEXETIL
     Dosage: 8MG DAILY
     Route: 048
  2. LEVODOPA-CARBIDOPA [Suspect]
     Active Substance: CARBIDOPA\LEVODOPA
     Dosage: 100/25MG THREE TIMES DAILY
     Route: 065
  3. ACETYLSALICYLIC ACID [Concomitant]
     Active Substance: ASPIRIN
     Dosage: 100MG DAILY
     Route: 065
  4. ROTIGOTINE [Suspect]
     Active Substance: ROTIGOTINE
     Dosage: 4MG DAILY
     Route: 065
  5. TORSEMIDE. [Suspect]
     Active Substance: TORSEMIDE
     Dosage: 10MG
     Route: 065
  6. PANTOPRAZOLE [Concomitant]
     Active Substance: PANTOPRAZOLE
     Dosage: 40MG DAILY
     Route: 065
  7. SIMVASTATIN. [Concomitant]
     Active Substance: SIMVASTATIN
     Dosage: 20MG
     Route: 065

REACTIONS (2)
  - Syncope [Unknown]
  - Loss of consciousness [Unknown]
